FAERS Safety Report 6247106-2 (Version None)
Quarter: 2009Q2

REPORT INFORMATION
  Report Type: 
  Country: None (occurrence: None)
  Receive Date: 20090626
  Receipt Date: 20090612
  Transmission Date: 20091009
  Serious: Yes (Other)
  Sender: FDA-Public Use
  Company Number: PHHY2009BR24674

PATIENT
  Sex: Female
  Weight: 51 kg

DRUGS (1)
  1. CATAFLAM [Suspect]
     Dosage: 02 TAB PER DAY, 50 MG
     Route: 048

REACTIONS (4)
  - ERYTHEMA [None]
  - EYELID OEDEMA [None]
  - SEBORRHOEIC DERMATITIS [None]
  - SKIN EXFOLIATION [None]
